FAERS Safety Report 14536175 (Version 1)
Quarter: 2018Q1

REPORT INFORMATION
  Report Type: Spontaneous
  Country: US (occurrence: US)
  Receive Date: 20180214
  Receipt Date: 20180214
  Transmission Date: 20180509
  Serious: Yes (Hospitalization)
  Sender: FDA-Public Use
  Company Number: None

PATIENT
  Age: 53 Year

DRUGS (10)
  1. HUMALOG [Concomitant]
     Active Substance: INSULIN LISPRO
  2. LANTUS [Concomitant]
     Active Substance: INSULIN GLARGINE
  3. BOSULIF [Suspect]
     Active Substance: BOSUTINIB MONOHYDRATE
     Indication: CHRONIC MYELOID LEUKAEMIA
     Route: 048
     Dates: start: 20160323
  4. AUGMENTIN [Concomitant]
     Active Substance: AMOXICILLIN\CLAVULANATE POTASSIUM
  5. CARVEDILOL. [Concomitant]
     Active Substance: CARVEDILOL
  6. SIMVASTATIN. [Concomitant]
     Active Substance: SIMVASTATIN
  7. CLOPIDOGREL BISULFATE. [Suspect]
     Active Substance: CLOPIDOGREL BISULFATE
  8. LISINOPRIL. [Concomitant]
     Active Substance: LISINOPRIL
  9. FERROUS SULFATE. [Suspect]
     Active Substance: FERROUS SULFATE
  10. SODIUM POLYSTYRENE SULFONATE. [Concomitant]
     Active Substance: SODIUM POLYSTYRENE SULFONATE

REACTIONS (2)
  - Myocardial infarction [None]
  - Unresponsive to stimuli [None]

NARRATIVE: CASE EVENT DATE: 20180210
